FAERS Safety Report 5136862-2 (Version None)
Quarter: 2006Q4

REPORT INFORMATION
  Report Type: 
  Country: None (occurrence: None)
  Receive Date: 20061023
  Receipt Date: 20061012
  Transmission Date: 20070319
  Serious: Yes (Hospitalization)
  Sender: FDA-Public Use
  Company Number: 2006083535

PATIENT
  Age: 52 Year
  Sex: Male
  Weight: 80 kg

DRUGS (2)
  1. ACCUPRIL [Suspect]
     Indication: HYPERTENSION
     Dosage: 10 MG
  2. INDAPAMIDE [Concomitant]

REACTIONS (5)
  - DIZZINESS [None]
  - HYPERTENSIVE CRISIS [None]
  - NYSTAGMUS [None]
  - VERTIGO [None]
  - VOMITING [None]
